FAERS Safety Report 6722152-0 (Version None)
Quarter: 2010Q2

REPORT INFORMATION
  Report Type: 
  Country: None (occurrence: None)
  Receive Date: 20100512
  Receipt Date: 20100430
  Transmission Date: 20101027
  Serious: Yes (Other)
  Sender: FDA-Public Use
  Company Number: JP-SANOFI-AVENTIS-2010SA004358

PATIENT
  Age: 63 Year
  Sex: Female

DRUGS (4)
  1. ELPLAT [Suspect]
     Indication: RECTAL CANCER
     Route: 041
     Dates: start: 20060701
  2. CALCIUM LEVOFOLINATE [Concomitant]
     Indication: RECTAL CANCER
     Route: 041
     Dates: start: 20060701
  3. FLUOROURACIL [Concomitant]
     Indication: RECTAL CANCER
     Route: 041
     Dates: start: 20060701
  4. FLUOROURACIL [Concomitant]
     Route: 040
     Dates: start: 20060701

REACTIONS (1)
  - NEUROPATHY PERIPHERAL [None]
